FAERS Safety Report 8451887-7 (Version None)
Quarter: 2012Q2

REPORT INFORMATION
  Report Type: 
  Country: None (occurrence: None)
  Receive Date: 20120620
  Receipt Date: 20120322
  Transmission Date: 20120825
  Serious: No
  Sender: FDA-Public Use
  Company Number: US-VERTEX PHARMACEUTICALS INC.-AE-2012-004188

PATIENT
  Sex: Male
  Weight: 99.88 kg

DRUGS (10)
  1. COREG [Concomitant]
     Route: 048
  2. ISOSORBIDE MONONITRATE [Concomitant]
     Route: 048
  3. ASPIRIN [Concomitant]
     Indication: ANTICOAGULANT THERAPY
     Route: 048
  4. GENERIC STOOL SOFTENER [Concomitant]
     Route: 048
  5. NITROGLYCERIN [Concomitant]
     Indication: CHEST PAIN
     Route: 060
  6. PEGASYS [Concomitant]
     Indication: HEPATITIS C
     Route: 058
     Dates: start: 20120311
  7. CVS BRAND HEMORRHOIDAL PREPARATION [Concomitant]
     Route: 061
  8. INCIVEK [Suspect]
     Indication: HEPATITIS C
     Route: 048
     Dates: start: 20120311
  9. RANITIDINE [Concomitant]
     Route: 048
  10. RIBAVIRIN [Concomitant]
     Indication: HEPATITIS C
     Route: 048
     Dates: start: 20120311

REACTIONS (2)
  - VISION BLURRED [None]
  - HAEMORRHOIDS [None]
